FAERS Safety Report 9258986 (Version 1)
Quarter: 2013Q2

REPORT INFORMATION
  Report Type: Report from Study
  Country: US (occurrence: US)
  Receive Date: 20130426
  Receipt Date: 20130426
  Transmission Date: 20140414
  Serious: Yes (Hospitalization)
  Sender: FDA-Public Use
  Company Number: US-ACTELION-A-US2011-49446

PATIENT
  Age: 45 Year
  Sex: Male

DRUGS (2)
  1. TRACLEER [Suspect]
     Indication: PULMONARY ARTERIAL HYPERTENSION
     Dosage: UNK
     Route: 048
  2. OXYGEN [Concomitant]

REACTIONS (9)
  - Thermal burn [Unknown]
  - Nasal disorder [Unknown]
  - Fatigue [Unknown]
  - Dyspnoea exertional [Unknown]
  - No therapeutic response [Unknown]
  - Nasopharyngitis [Unknown]
  - Local swelling [Unknown]
  - Joint swelling [Unknown]
  - Dyspnoea [Unknown]
